FAERS Safety Report 15618136 (Version 1)
Quarter: 2018Q4

REPORT INFORMATION
  Report Type: Other
  Country: None (occurrence: US)
  Receive Date: 20181114
  Receipt Date: 20181114
  Transmission Date: 20190205
  Serious: Yes (Other)
  Sender: FDA-Public Use
  Company Number: US-GUTHY-RENKER, LLC-2058853

PATIENT
  Sex: Female

DRUGS (2)
  1. ACTIVE RADIANCE DAY MOISTURE SPF 30 [Suspect]
     Active Substance: AVOBENZONE\OCTINOXATE\OCTISALATE\OCTOCRYLENE\OXYBENZONE
     Route: 061
     Dates: start: 20180715, end: 20180715
  2. ACCELERATED DARK SPOT CORRECTOR [Suspect]
     Active Substance: HYDROQUINONE
     Route: 061
     Dates: start: 20180715, end: 20180715

REACTIONS (1)
  - Face oedema [Recovered/Resolved]

NARRATIVE: CASE EVENT DATE: 20180716
